FAERS Safety Report 12341611 (Version 2)
Quarter: 2017Q2

REPORT INFORMATION
  Report Type: Spontaneous
  Country: FR (occurrence: FR)
  Receive Date: 20160506
  Receipt Date: 20170601
  Transmission Date: 20170830
  Serious: Yes (Hospitalization)
  Sender: FDA-Public Use
  Company Number: FR-SA-2016SA087029

PATIENT
  Sex: Male
  Weight: 1.55 kg

DRUGS (5)
  1. STILNOX [Suspect]
     Active Substance: ZOLPIDEM TARTRATE
     Route: 064
     Dates: start: 20150816
  2. XEROQUEL [Suspect]
     Active Substance: QUETIAPINE FUMARATE
     Route: 064
     Dates: start: 20150816
  3. LARGACTIL [Suspect]
     Active Substance: CHLORPROMAZINE
     Route: 064
     Dates: start: 20150816
  4. NORDAZ [Suspect]
     Active Substance: NORDAZEPAM
     Route: 064
     Dates: start: 20150816
  5. SERESTA [Suspect]
     Active Substance: OXAZEPAM
     Route: 064
     Dates: start: 20150816

REACTIONS (2)
  - Foetal growth restriction [Not Recovered/Not Resolved]
  - Foetal exposure during pregnancy [Unknown]

NARRATIVE: CASE EVENT DATE: 20160322
